FAERS Safety Report 4708217-3 (Version None)
Quarter: 2005Q2

REPORT INFORMATION
  Report Type: 
  Country: None (occurrence: None)
  Receive Date: 20050629
  Receipt Date: 20050516
  Transmission Date: 20051028
  Serious: No
  Sender: FDA-Public Use
  Company Number: 05P-163-0300604-00

PATIENT
  Age: 77 Year
  Sex: Female
  Weight: 53.5244 kg

DRUGS (8)
  1. HUMIRA [Suspect]
     Indication: RHEUMATOID ARTHRITIS
     Dosage: 40 MG, 1 IN 2 WK, SUBCUTANEOUS
     Route: 058
     Dates: start: 20050411
  2. METHOTREXATE [Concomitant]
  3. FOLINIC ACID [Concomitant]
  4. FOLIC ACID [Concomitant]
  5. CYPROHEPTADINE HYDROCHLORIDE [Concomitant]
  6. MULTI-VITAMINS [Concomitant]
  7. ASCORBIC ACID [Concomitant]
  8. OCUVITE [Concomitant]

REACTIONS (1)
  - PARAESTHESIA [None]
